FAERS Safety Report 6741557-5 (Version None)
Quarter: 2010Q2

REPORT INFORMATION
  Report Type: 
  Country: None (occurrence: None)
  Receive Date: 20100526
  Receipt Date: 20100519
  Transmission Date: 20101027
  Serious: Yes (Other)
  Sender: FDA-Public Use
  Company Number: FR-ABBOTT-10P-056-0637729-00

PATIENT
  Sex: Female

DRUGS (3)
  1. HUMIRA [Suspect]
     Indication: SPONDYLITIS
     Route: 058
     Dates: start: 20080901
  2. ENBREL [Suspect]
     Indication: SPONDYLITIS
     Route: 058
     Dates: end: 20080830
  3. METHOTREXATE [Concomitant]
     Indication: SPONDYLITIS

REACTIONS (2)
  - BLOOD PRESSURE INCREASED [None]
  - CERVICAL DYSPLASIA [None]
